FAERS Safety Report 6377831-4 (Version None)
Quarter: 2009Q3

REPORT INFORMATION
  Report Type: 
  Country: None (occurrence: None)
  Receive Date: 20090925
  Receipt Date: 20090922
  Transmission Date: 20100115
  Serious: Yes (Hospitalization)
  Sender: FDA-Public Use
  Company Number: US-B.I. PHARMACEUTICALS,INC./RIDGEFIELD-2007-BP-00515BP

PATIENT
  Sex: Female

DRUGS (10)
  1. SPIRIVA [Suspect]
     Indication: CHRONIC OBSTRUCTIVE PULMONARY DISEASE
     Dosage: 18 MCG
     Route: 055
     Dates: start: 20020701
  2. SPIRIVA [Suspect]
     Indication: EMPHYSEMA
  3. DIGOXIN [Concomitant]
     Indication: ATRIAL FIBRILLATION
     Dosage: 0.125 MG
     Route: 048
     Dates: start: 20040101
  4. ADVAIR DISKUS 100/50 [Concomitant]
  5. ALBUTEROL [Concomitant]
  6. CARDIZEM [Concomitant]
     Indication: ATRIAL FIBRILLATION
     Dosage: 120 MG
     Route: 048
     Dates: start: 20040101
  7. OXYGEN [Concomitant]
     Indication: EMPHYSEMA
     Route: 045
     Dates: start: 20020101
  8. TRUSOPT [Concomitant]
  9. AZOPT [Concomitant]
     Indication: GLAUCOMA
     Dates: start: 20000101
  10. XALATAN [Concomitant]
     Indication: GLAUCOMA
     Dates: start: 20090101

REACTIONS (6)
  - ATRIAL FIBRILLATION [None]
  - CATARACT [None]
  - DRY MOUTH [None]
  - DRY SKIN [None]
  - URINARY RETENTION [None]
  - VISION BLURRED [None]
